FAERS Safety Report 20170454 (Version 1)
Quarter: 2021Q4

REPORT INFORMATION
  Report Type: Spontaneous
  Country: GB (occurrence: GB)
  Receive Date: 20211210
  Receipt Date: 20211210
  Transmission Date: 20220303
  Serious: Yes (Other)
  Sender: FDA-Public Use
  Company Number: None

PATIENT

DRUGS (8)
  1. PREDNISOLONE [Suspect]
     Active Substance: PREDNISOLONE
     Indication: Eye infection toxoplasmal
     Dosage: 40 MG, QD (40MG OD FOR 1 WEEK THEN 30MG OD FOR 1 WEEK)
     Route: 048
     Dates: start: 20210515, end: 20210529
  2. PREDNISOLONE [Suspect]
     Active Substance: PREDNISOLONE
     Dosage: 30 MG, QD (40MG OD FOR 1 WEEK THEN 30MG OD FOR 1 WEEK)
     Route: 048
     Dates: start: 20210515, end: 20210529
  3. PREDNISOLONE [Suspect]
     Active Substance: PREDNISOLONE
     Indication: Eye infection toxoplasmal
     Dosage: 1 DROP, QID, 1%, 1 DROP QDS RIGHT EYE FOR 1 MONTH
     Route: 047
     Dates: start: 20210515, end: 20210615
  4. AZITHROMYCIN [Suspect]
     Active Substance: AZITHROMYCIN
     Indication: Eye infection toxoplasmal
     Dosage: 250 MG, BID
     Route: 048
     Dates: start: 20210515, end: 20210615
  5. COTRIMOXAZOLE [Suspect]
     Active Substance: SULFAMETHOXAZOLE\TRIMETHOPRIM
     Indication: Eye infection toxoplasmal
     Dosage: 960 MG, BID
     Route: 048
     Dates: start: 20210515, end: 20210615
  6. MAXITROL [Suspect]
     Active Substance: DEXAMETHASONE\NEOMYCIN SULFATE\POLYMYXIN B SULFATE
     Indication: Eye infection toxoplasmal
     Dosage: EYE OINTMENT AT NIGHT, RIGHT EYE FOR 1 MONTH
     Route: 047
     Dates: start: 20210515, end: 20210615
  7. BECLOMETHASONE\FORMOTEROL [Concomitant]
     Active Substance: BECLOMETHASONE\FORMOTEROL
     Indication: Ill-defined disorder
     Dosage: UNK
  8. ALBUTEROL SULFATE [Concomitant]
     Active Substance: ALBUTEROL SULFATE
     Indication: Ill-defined disorder
     Dosage: UNK

REACTIONS (3)
  - Sweating fever [Recovered/Resolved]
  - Alanine aminotransferase increased [Recovered/Resolved]
  - Rash [Recovering/Resolving]

NARRATIVE: CASE EVENT DATE: 20210619
